FAERS Safety Report 21643066 (Version 1)
Quarter: 2022Q4

REPORT INFORMATION
  Report Type: Spontaneous
  Country: US (occurrence: US)
  Receive Date: 20221125
  Receipt Date: 20221125
  Transmission Date: 20230113
  Serious: No
  Sender: FDA-Public Use
  Company Number: US-SA-SAC20221123000651

PATIENT
  Age: 78 Year
  Sex: Female

DRUGS (9)
  1. DUPIXENT [Suspect]
     Active Substance: DUPILUMAB
     Indication: Asthma
     Dosage: 1 DF, QOW
     Route: 058
     Dates: start: 20221101
  2. ADDERALL [Concomitant]
     Active Substance: AMPHETAMINE ASPARTATE\AMPHETAMINE SULFATE\DEXTROAMPHETAMINE SACCHARATE\DEXTROAMPHETAMINE SULFATE
  3. ABILIFY [Concomitant]
     Active Substance: ARIPIPRAZOLE
  4. CELECOXIB [Concomitant]
     Active Substance: CELECOXIB
  5. LOSARTAN [Concomitant]
     Active Substance: LOSARTAN
  6. KLONOPIN [Concomitant]
     Active Substance: CLONAZEPAM
  7. SIMVASTATIN [Concomitant]
     Active Substance: SIMVASTATIN
  8. GABAPENTIN [Concomitant]
     Active Substance: GABAPENTIN
  9. METAMUCIL [Concomitant]
     Active Substance: PLANTAGO SEED

REACTIONS (1)
  - Rash [Unknown]

NARRATIVE: CASE EVENT DATE: 20221101
